FAERS Safety Report 11071834 (Version 1)
Quarter: 2015Q2

REPORT INFORMATION
  Report Type: Spontaneous
  Country: GB (occurrence: None)
  Receive Date: 20150424
  Receipt Date: 20150424
  Transmission Date: 20150821
  Serious: Yes (Life-Threatening, Hospitalization)
  Sender: FDA-Public Use
  Company Number: 2015HINREG0352

PATIENT
  Age: 85 Year
  Sex: Female

DRUGS (4)
  1. LINEZOLID (LINEZOLID) UNKNOWN [Suspect]
     Active Substance: LINEZOLID
     Indication: INFECTION
     Route: 048
     Dates: start: 20150224, end: 20150324
  2. LISINOPRIL. [Concomitant]
     Active Substance: LISINOPRIL
  3. LACTULOSE (LACTULOSE) [Concomitant]
     Active Substance: LACTULOSE
  4. FERROUS SULFATE [Concomitant]
     Active Substance: FERROUS SULFATE\FERROUS SULFATE, DRIED

REACTIONS (2)
  - Pancytopenia [None]
  - Iron deficiency anaemia [None]

NARRATIVE: CASE EVENT DATE: 20150325
